FAERS Safety Report 19469972 (Version 1)
Quarter: 2021Q2

REPORT INFORMATION
  Report Type: Spontaneous
  Country: IT (occurrence: IT)
  Receive Date: 20210629
  Receipt Date: 20210629
  Transmission Date: 20210717
  Serious: Yes (Hospitalization, Other)
  Sender: FDA-Public Use
  Company Number: IT-SA-2021SA180407

PATIENT
  Age: 67 Year
  Sex: Male

DRUGS (17)
  1. HYDROXYCHLOROQUINE [Interacting]
     Active Substance: HYDROXYCHLOROQUINE
     Indication: PRODUCT USE IN UNAPPROVED INDICATION
  2. LEVETIRACETAM. [Concomitant]
     Active Substance: LEVETIRACETAM
     Dosage: UNK UNK, UNKNOWN
     Route: 065
  3. HYDROXYCHLOROQUINE [Interacting]
     Active Substance: HYDROXYCHLOROQUINE
     Indication: COVID-19 PNEUMONIA
     Dosage: 11 DAYS
     Route: 065
     Dates: start: 202003, end: 202004
  4. AZITHROMYCIN ANHYDROUS. [Interacting]
     Active Substance: AZITHROMYCIN ANHYDROUS
     Indication: COVID-19 PNEUMONIA
     Dosage: UNK UNK, UNKNOWN
     Route: 065
     Dates: start: 202003, end: 202004
  5. METYRAPONE [Interacting]
     Active Substance: METYRAPONE
     Dosage: UNK
     Dates: start: 202001, end: 202004
  6. METFORMIN [Concomitant]
     Active Substance: METFORMIN HYDROCHLORIDE
     Indication: DIABETES MELLITUS
     Dosage: UNK
     Dates: start: 201806, end: 202002
  7. CEFTRIAXONE. [Suspect]
     Active Substance: CEFTRIAXONE
     Indication: COVID-19 PNEUMONIA
     Dosage: 12 DAYS
     Route: 065
     Dates: start: 202003, end: 202004
  8. METYRAPONE [Interacting]
     Active Substance: METYRAPONE
     Indication: PITUITARY-DEPENDENT CUSHING^S SYNDROME
     Dosage: 500 MG, HS
     Dates: start: 201805, end: 2019
  9. PASIREOTIDE. [Interacting]
     Active Substance: PASIREOTIDE
     Indication: PITUITARY-DEPENDENT CUSHING^S SYNDROME
     Dosage: 40 MG, QM
     Route: 058
     Dates: start: 2013
  10. PASIREOTIDE. [Interacting]
     Active Substance: PASIREOTIDE
     Dosage: UNK, QM
     Route: 030
     Dates: end: 202003
  11. CABERGOLINE. [Concomitant]
     Active Substance: CABERGOLINE
     Indication: CUSHING^S SYNDROME
     Dosage: 0.5 MG, QD (1/DAY)
     Route: 065
     Dates: start: 2013
  12. OXYGEN. [Concomitant]
     Active Substance: OXYGEN
     Indication: OXYGEN THERAPY
  13. OXYGEN. [Concomitant]
     Active Substance: OXYGEN
     Indication: COVID-19 PNEUMONIA
  14. L?THYROXIN [LEVOTHYROXINE] [Concomitant]
     Active Substance: LEVOTHYROXINE SODIUM
     Indication: HYPOPITUITARISM
     Dosage: 100 UG, QD
  15. ENOXAPARIN SODIUM. [Suspect]
     Active Substance: ENOXAPARIN SODIUM
     Indication: DEEP VEIN THROMBOSIS
     Dosage: 8000 UI X 2 DAILY
     Route: 058
     Dates: start: 202002
  16. SITAGLIPTIN [Concomitant]
     Active Substance: SITAGLIPTIN
     Indication: DIABETES MELLITUS
     Dosage: 50 MILLIGRAM, QD
     Route: 065
     Dates: start: 201806, end: 2020
  17. ASPIRIN [ACETYLSALICYLIC ACID] [Concomitant]
     Active Substance: ASPIRIN
     Dosage: UNK
     Dates: end: 202002

REACTIONS (5)
  - Adrenal insufficiency [Recovering/Resolving]
  - Drug interaction [Recovering/Resolving]
  - Off label use [Unknown]
  - Hypoglycaemia [Recovered/Resolved]
  - Hyperkalaemia [Recovered/Resolved]

NARRATIVE: CASE EVENT DATE: 202002
